FAERS Safety Report 9001629 (Version 1)
Quarter: 2013Q1

REPORT INFORMATION
  Report Type: Spontaneous
  Country: EC (occurrence: EC)
  Receive Date: 20130107
  Receipt Date: 20130107
  Transmission Date: 20140127
  Serious: Yes (Other)
  Sender: FDA-Public Use
  Company Number: PHHY2012EC122628

PATIENT
  Sex: Female

DRUGS (1)
  1. ACLASTA [Suspect]
     Dosage: UNK UKN, UNK
     Route: 042
     Dates: start: 201202

REACTIONS (6)
  - Vulvovaginitis [Recovering/Resolving]
  - Vulvovaginal burning sensation [Recovering/Resolving]
  - Skin reaction [Recovering/Resolving]
  - Acne [Recovering/Resolving]
  - Dermatitis [Recovering/Resolving]
  - Blepharitis [Recovering/Resolving]
